FAERS Safety Report 17411668 (Version 1)
Quarter: 2020Q1

REPORT INFORMATION
  Report Type: Report from Study
  Country: EG (occurrence: EG)
  Receive Date: 20200213
  Receipt Date: 20200213
  Transmission Date: 20200409
  Serious: Yes (Other)
  Sender: FDA-Public Use
  Company Number: EG-EMD SERONO-9145359

PATIENT
  Age: 39 Year
  Sex: Female

DRUGS (1)
  1. REBIF [Suspect]
     Active Substance: INTERFERON BETA-1A
     Indication: MULTIPLE SCLEROSIS
     Route: 058
     Dates: start: 20170302, end: 20200101

REACTIONS (3)
  - Hepatic function abnormal [Recovered/Resolved]
  - Influenza like illness [Unknown]
  - Renal disorder [Recovered/Resolved]
